FAERS Safety Report 4299930-3 (Version None)
Quarter: 2004Q1

REPORT INFORMATION
  Report Type: 
  Country: None (occurrence: None)
  Receive Date: 20040218
  Receipt Date: 20040205
  Transmission Date: 20041129
  Serious: Yes (Death)
  Sender: FDA-Public Use
  Company Number: GB-JNJFOC-20040202863

PATIENT
  Sex: 0

DRUGS (4)
  1. TOPIRAMATE [Suspect]
     Indication: MATERNAL DRUGS AFFECTING FOETUS
     Dosage: 200 MG, 2 IN 1 DAY, INTRA-UTERINE
     Route: 015
     Dates: start: 19990101
  2. FOLIC ACID TAB [Suspect]
     Indication: MATERNAL DRUGS AFFECTING FOETUS
     Dosage: 5 MG, IN 1 DAY, INTRAUTERINE
     Route: 015
     Dates: start: 20030101
  3. ACETAMINOPHEN AND CODEINE PHOSPHATE [Suspect]
     Dosage: 60 MG, INTRAUTERINE
     Route: 015
     Dates: start: 20031001, end: 20031014
  4. ACETAMINOPHEN [Suspect]
     Dosage: 500 MG, INTRAUTERINE
     Route: 015
     Dates: start: 20031004, end: 20031014

REACTIONS (5)
  - COMPLICATIONS OF MATERNAL EXPOSURE TO THERAPEUTIC DRUGS [None]
  - INTRA-UTERINE DEATH [None]
  - MATERNAL DRUGS AFFECTING FOETUS [None]
  - PREGNANCY [None]
  - STILLBIRTH [None]
